FAERS Safety Report 4339269-0 (Version None)
Quarter: 2004Q2

REPORT INFORMATION
  Report Type: 
  Country: None (occurrence: None)
  Receive Date: 20040412
  Receipt Date: 20040331
  Transmission Date: 20050107
  Serious: Yes (Hospitalization)
  Sender: FDA-Public Use
  Company Number: MK200312-0150-3

PATIENT
  Age: 82 Year
  Sex: Female

DRUGS (8)
  1. ANAFRANIL [Suspect]
     Indication: DEPRESSION
  2. SYMMETREL [Suspect]
  3. ADALAT SLOW RELEASE [Concomitant]
  4. SEROQUEL [Concomitant]
  5. QUETIAPINE [Concomitant]
  6. ETHYL LOFLAZEPATE [Concomitant]
  7. NORVASC [Concomitant]
  8. MILNACIPRAN [Concomitant]

REACTIONS (6)
  - DELIRIUM [None]
  - DEMENTIA [None]
  - DEPRESSION [None]
  - DISEASE RECURRENCE [None]
  - HALLUCINATION [None]
  - PARKINSONISM [None]
